FAERS Safety Report 8912219 (Version 1)
Quarter: 2012Q4

REPORT INFORMATION
  Report Type: 
  Country: FR (occurrence: FR)
  Receive Date: 20121116
  Receipt Date: 20121116
  Transmission Date: 20130627
  Serious: Yes (Hospitalization, Disabling)
  Sender: FDA-Public Use
  Company Number: FR-ROCHE-1104528

PATIENT
  Age: 68 Year
  Sex: Male

DRUGS (4)
  1. MABTHERA [Suspect]
     Indication: LYMPHOMA
     Route: 065
     Dates: start: 201203, end: 201209
  2. MABTHERA [Suspect]
     Route: 065
     Dates: start: 201210
  3. UNSPECIFIED INGREDIENT [Suspect]
     Indication: LYMPHOMA
     Route: 065
  4. UNSPECIFIED INGREDIENT [Suspect]
     Route: 065
     Dates: start: 201209

REACTIONS (3)
  - Lung disorder [Recovered/Resolved]
  - Dyspnoea [Recovered/Resolved with Sequelae]
  - Pulmonary hypertension [Recovered/Resolved with Sequelae]
